FAERS Safety Report 7924882-1 (Version None)
Quarter: 2011Q4

REPORT INFORMATION
  Report Type: 
  Country: None (occurrence: None)
  Receive Date: 20111118
  Receipt Date: 20110329
  Transmission Date: 20120403
  Serious: No
  Sender: FDA-Public Use
  Company Number: US-AMGEN-USASP2011016816

PATIENT
  Age: 37 Year
  Sex: Female

DRUGS (1)
  1. ENBREL [Suspect]
     Indication: PSORIASIS
     Dates: start: 20110323

REACTIONS (6)
  - HEADACHE [None]
  - IRRITABILITY [None]
  - PRURITUS [None]
  - PANIC ATTACK [None]
  - FATIGUE [None]
  - ANXIETY [None]
